FAERS Safety Report 4542378-4 (Version None)
Quarter: 2004Q4

REPORT INFORMATION
  Report Type: 
  Country: None (occurrence: None)
  Receive Date: 20041229
  Receipt Date: 20041206
  Transmission Date: 20050328
  Serious: Yes (Hospitalization)
  Sender: FDA-Public Use
  Company Number: STA-AE-04-038

PATIENT
  Age: 35 Year
  Sex: Male

DRUGS (8)
  1. AMPICILLIN SODIUM [Suspect]
     Indication: INFECTION
     Dosage: 500 MG TID, ORAL
     Route: 048
     Dates: start: 20041018, end: 20041025
  2. ATENOLOL [Concomitant]
  3. AVOLIDE [Concomitant]
  4. LIPITOR [Concomitant]
  5. KCL TAB [Concomitant]
  6. ADALAT [Concomitant]
  7. AVILIDE [Concomitant]
  8. ASPIRIN [Concomitant]

REACTIONS (3)
  - PYREXIA [None]
  - RASH [None]
  - RENAL FAILURE ACUTE [None]
